FAERS Safety Report 21490796 (Version 1)
Quarter: 2022Q4

REPORT INFORMATION
  Report Type: Spontaneous
  Country: US (occurrence: US)
  Receive Date: 20221021
  Receipt Date: 20221021
  Transmission Date: 20230113
  Serious: No
  Sender: FDA-Public Use
  Company Number: US-CELLTRION INC.-2022US010865

PATIENT

DRUGS (1)
  1. INFLECTRA [Suspect]
     Active Substance: INFLIXIMAB-DYYB
     Indication: Furuncle
     Dosage: SIX(6) 100 MG/20ML (FREQUENCY: WKS 0,2,6, THEN Q8 WKS QUANTITY: 36 REFILLS: 12)
     Route: 065

REACTIONS (1)
  - Off label use [Unknown]
